FAERS Safety Report 8362466-4 (Version None)
Quarter: 2012Q2

REPORT INFORMATION
  Report Type: 
  Country: None (occurrence: None)
  Receive Date: 20120514
  Receipt Date: 20120514
  Transmission Date: 20120825
  Serious: Yes (Congenital Anomaly)
  Sender: FDA-Public Use
  Company Number: None

PATIENT
  Sex: Female
  Weight: 3 kg

DRUGS (1)
  1. FLUCONAZOLE [Suspect]

REACTIONS (4)
  - MULTIPLE CONGENITAL ABNORMALITIES [None]
  - CONGENITAL NOSE MALFORMATION [None]
  - CRANIOSYNOSTOSIS [None]
  - JOINT CONTRACTURE [None]
